FAERS Safety Report 7309321-6 (Version None)
Quarter: 2011Q1

REPORT INFORMATION
  Report Type: 
  Country: None (occurrence: None)
  Receive Date: 20110223
  Receipt Date: 20110218
  Transmission Date: 20110831
  Serious: Yes (Other)
  Sender: FDA-Public Use
  Company Number: FR-ROCHE-761326

PATIENT
  Sex: Female
  Weight: 90 kg

DRUGS (5)
  1. BEVACIZUMAB [Suspect]
     Indication: INFLAMMATORY CARCINOMA OF THE BREAST
     Dosage: LAST DOSE: 30 AUGUST 2010, CUMULATIVE DOSE: 6825 MG
     Route: 042
     Dates: start: 20100609
  2. EPIRUBICIN [Suspect]
     Indication: INFLAMMATORY CARCINOMA OF THE BREAST
     Dosage: LAST DOSE: 10 AUGUDST 2010, CUMULATIVE DOSE: 745 MG
     Route: 042
     Dates: start: 20100609
  3. CYCLOPHOSPHAMIDE [Suspect]
     Indication: INFLAMMATORY CARCINOMA OF THE BREAST
     Dosage: CUMULATIVE DOSE:3740 MG
     Route: 065
     Dates: start: 20100609, end: 20100810
  4. DOCETAXEL [Suspect]
     Indication: INFLAMMATORY CARCINOMA OF THE BREAST
     Dosage: CUMULATIVE DOSE: 185 MG
     Route: 065
     Dates: start: 20100831, end: 20100831
  5. 5-FU [Suspect]
     Indication: INFLAMMATORY CARCINOMA OF THE BREAST
     Dosage: LAST DOSE: 10 AUGUST 2010, CUMULATIVE DOSE:3740 MG
     Route: 042
     Dates: start: 20100609

REACTIONS (2)
  - PHARYNGEAL INFLAMMATION [None]
  - HYPERSENSITIVITY [None]
